FAERS Safety Report 4452918-1 (Version None)
Quarter: 2004Q3

REPORT INFORMATION
  Report Type: 
  Country: None (occurrence: None)
  Receive Date: 20040916
  Receipt Date: 20040902
  Transmission Date: 20050211
  Serious: Yes (Other)
  Sender: FDA-Public Use
  Company Number: 2004054101

PATIENT
  Age: 56 Year
  Sex: Female
  Weight: 71.6683 kg

DRUGS (11)
  1. NEURONTIN [Suspect]
     Indication: SPINAL COLUMN STENOSIS
     Dosage: 900 MG, (300 MG, 3 IN 1 D), ORAL
     Route: 048
     Dates: start: 20040715, end: 20040701
  2. VENLAFAXINE HCL [Suspect]
     Indication: ILL-DEFINED DISORDER
     Dosage: 75 MG (75 MG, 1 IN 1 D)
     Dates: start: 20040715
  3. HYZAAR [Concomitant]
  4. HYSOCYAMINE (HYOSCYAMINE) [Concomitant]
  5. OXYCODONE HCL [Concomitant]
  6. FENTANYL [Concomitant]
  7. ALPRAZOLAM [Concomitant]
  8. PREDNISONE [Concomitant]
  9. WARFARIN (WARFARIN) [Concomitant]
  10. LANSOPRAZOLE [Concomitant]
  11. TRIAMCINOLONE ACETONIDE [Concomitant]

REACTIONS (11)
  - BLOOD PRESSURE FLUCTUATION [None]
  - DEHYDRATION [None]
  - DEPRESSED LEVEL OF CONSCIOUSNESS [None]
  - DIPLOPIA [None]
  - DISORIENTATION [None]
  - FATIGUE [None]
  - HEART RATE INCREASED [None]
  - KIDNEY INFECTION [None]
  - PRURITUS GENERALISED [None]
  - RASH [None]
  - SOMNOLENCE [None]
